FAERS Safety Report 5788579-9 (Version None)
Quarter: 2008Q2

REPORT INFORMATION
  Report Type: 
  Country: None (occurrence: None)
  Receive Date: 20080626
  Receipt Date: 20080219
  Transmission Date: 20081010
  Serious: No
  Sender: FDA-Public Use
  Company Number: US-BAYER-200814942NA

PATIENT
  Age: 47 Year
  Sex: Female
  Weight: 84 kg

DRUGS (3)
  1. MIRENA [Suspect]
     Indication: CONTRACEPTION
     Route: 014
     Dates: start: 20050606
  2. ATENOLOL [Concomitant]
     Indication: HYPERTENSION
     Route: 048
  3. IMITREX [Concomitant]
     Indication: MIGRAINE
     Route: 048

REACTIONS (1)
  - MENSTRUATION IRREGULAR [None]
